FAERS Safety Report 6905426-X (Version None)
Quarter: 2010Q3

REPORT INFORMATION
  Report Type: 
  Country: None (occurrence: None)
  Receive Date: 20100804
  Receipt Date: 20100723
  Transmission Date: 20110219
  Serious: Yes (Other)
  Sender: FDA-Public Use
  Company Number: GB-SOLVAY-00210004747

PATIENT
  Age: 89 Year
  Sex: Female

DRUGS (6)
  1. ZOPICLONE [Concomitant]
     Indication: INSOMNIA
     Dosage: DAILY DOSE:  UNKNOWN, 7.5MG
     Route: 065
     Dates: start: 19930319
  2. LEVOTHYROXINE [Concomitant]
     Indication: HYPERTHYROIDISM
     Dosage: DAILY DOSE:  UNKNOWN
     Route: 065
     Dates: start: 20041001
  3. FELBINAC [Concomitant]
     Indication: OSTEOARTHRITIS
     Dosage: DAILY DOSE: 3 DOSAGE FORM
     Route: 065
     Dates: start: 19941216
  4. CLOPIDOGREL [Concomitant]
     Indication: SUPRAVENTRICULAR TACHYCARDIA
     Dosage: DAILY DOSE: 75 MILLIGRAM(S)
     Route: 065
     Dates: start: 20010323
  5. ATENOLOL [Concomitant]
     Indication: HYPERTENSION
     Dosage: DAILY DOSE:  UNKNOWN, 50MG
     Route: 065
     Dates: start: 20030423
  6. PERINDOPRIL ERBUMINE [Suspect]
     Indication: HYPERTENSION
     Dosage: DAILY DOSE:  UNKNOWN
     Route: 048
     Dates: start: 20091012, end: 20100615

REACTIONS (1)
  - MACULAR DEGENERATION [None]
